FAERS Safety Report 6090010-3 (Version None)
Quarter: 2009Q1

REPORT INFORMATION
  Report Type: 
  Country: None (occurrence: None)
  Receive Date: 20090220
  Receipt Date: 20090211
  Transmission Date: 20090719
  Serious: No
  Sender: FDA-Public Use
  Company Number: DSU-2009-00370

PATIENT
  Sex: Male

DRUGS (1)
  1. WELCHOL [Suspect]
     Indication: HYPERLIPIDAEMIA
     Dosage: 1875 MG, PER ORAL
     Route: 048
     Dates: start: 20080924

REACTIONS (1)
  - FOREIGN BODY TRAUMA [None]
